FAERS Safety Report 4441910-9 (Version None)
Quarter: 2004Q3

REPORT INFORMATION
  Report Type: 
  Country: None (occurrence: None)
  Receive Date: 20040903
  Receipt Date: 20040603
  Transmission Date: 20050211
  Serious: Yes (Other)
  Sender: FDA-Public Use
  Company Number: 2004UW11545

PATIENT
  Age: 60 Year
  Sex: Female
  Weight: 55.3388 kg

DRUGS (1)
  1. CRESTOR [Suspect]
     Indication: BLOOD TRIGLYCERIDES INCREASED
     Dosage: 10 MG PO
     Route: 048
     Dates: start: 20040415, end: 20040601

REACTIONS (3)
  - BACK PAIN [None]
  - MUSCLE SPASMS [None]
  - PAIN IN EXTREMITY [None]
